FAERS Safety Report 5907438-1 (Version None)
Quarter: 2008Q4

REPORT INFORMATION
  Report Type: 
  Country: None (occurrence: None)
  Receive Date: 20081003
  Receipt Date: 20080926
  Transmission Date: 20090506
  Serious: Yes (Hospitalization)
  Sender: FDA-Public Use
  Company Number: A0750159A

PATIENT
  Age: 31 Year
  Sex: Female
  Weight: 95.5 kg

DRUGS (2)
  1. AVANDIA [Suspect]
     Indication: DIABETES MELLITUS
     Dosage: 4MG TWICE PER DAY
     Route: 048
     Dates: end: 20060201
  2. ZOLOFT [Concomitant]

REACTIONS (1)
  - CEREBROVASCULAR ACCIDENT [None]
